FAERS Safety Report 20124162 (Version 1)
Quarter: 2021Q4

REPORT INFORMATION
  Report Type: Spontaneous
  Country: US (occurrence: US)
  Receive Date: 20211129
  Receipt Date: 20211129
  Transmission Date: 20220303
  Serious: Yes (Other)
  Sender: FDA-Public Use
  Company Number: US-GLAXOSMITHKLINE- US2021GSK243805

PATIENT
  Sex: Male

DRUGS (4)
  1. ZANTAC [Suspect]
     Active Substance: RANITIDINE HYDROCHLORIDE
     Indication: Epistaxis
     Dosage: 25 MG, WE
     Route: 065
     Dates: start: 199404, end: 201402
  2. ZANTAC [Suspect]
     Active Substance: RANITIDINE HYDROCHLORIDE
     Indication: Epistaxis
     Dosage: 25 MG, WE
     Route: 065
     Dates: start: 199404, end: 201402
  3. RANITIDINE [Suspect]
     Active Substance: RANITIDINE
     Indication: Epistaxis
     Dosage: 25 MG, WE
     Route: 065
     Dates: start: 199404, end: 201402
  4. RANITIDINE [Suspect]
     Active Substance: RANITIDINE
     Indication: Epistaxis
     Dosage: 25 MG, WE
     Route: 065
     Dates: start: 199404, end: 201402

REACTIONS (2)
  - Bladder cancer [Unknown]
  - Prostate cancer [Unknown]
